FAERS Safety Report 18361756 (Version 4)
Quarter: 2020Q4

REPORT INFORMATION
  Report Type: Spontaneous
  Country: US (occurrence: US)
  Receive Date: 20201008
  Receipt Date: 20201123
  Transmission Date: 20210114
  Serious: Yes (Hospitalization)
  Sender: FDA-Public Use
  Company Number: US-SEATTLE GENETICS-2020SGN03770

PATIENT
  Age: 45 Year
  Sex: Female

DRUGS (1)
  1. TUKYSA [Suspect]
     Active Substance: TUCATINIB
     Indication: BREAST CANCER FEMALE
     Dosage: UNK
     Route: 065

REACTIONS (10)
  - Hepatic cancer [Unknown]
  - Product dose omission issue [Unknown]
  - Peripheral swelling [Unknown]
  - Asthenia [Unknown]
  - Muscular weakness [Unknown]
  - Hospice care [Unknown]
  - Biopsy liver [Unknown]
  - Liver disorder [Unknown]
  - Fall [Unknown]
  - Constipation [Unknown]

NARRATIVE: CASE EVENT DATE: 20201013
